FAERS Safety Report 10314961 (Version 2)
Quarter: 2014Q3

REPORT INFORMATION
  Report Type: Spontaneous
  Country: US (occurrence: US)
  Receive Date: 20140718
  Receipt Date: 20140722
  Transmission Date: 20150326
  Serious: No
  Sender: FDA-Public Use
  Company Number: US-009507513-1407USA008513

PATIENT
  Age: 22 Year
  Sex: Female
  Weight: 76.19 kg

DRUGS (1)
  1. IMPLANON [Suspect]
     Active Substance: ETONOGESTREL
     Indication: CONTRACEPTION
     Dosage: 1 ROD/ 3 YEARS, INSERTED LEFT ARM
     Route: 059
     Dates: start: 20140715

REACTIONS (1)
  - Implant site pain [Unknown]

NARRATIVE: CASE EVENT DATE: 20140717
